FAERS Safety Report 5835021-5 (Version None)
Quarter: 2008Q3

REPORT INFORMATION
  Report Type: 
  Country: None (occurrence: None)
  Receive Date: 20080724
  Receipt Date: 20080421
  Transmission Date: 20090109
  Serious: Yes (Other)
  Sender: FDA-Public Use
  Company Number: 2008-BP-04995BP

PATIENT
  Age: 54 Year
  Sex: Female
  Weight: 68 kg

DRUGS (4)
  1. APTIVUS / RITONAVIR (TIPRANAVIR) [Suspect]
     Indication: HIV INFECTION
     Dosage: TPV 500 MG BID / R 400 MG (SEE TEXT,TPV/R 250/200MG),PO
     Route: 048
     Dates: start: 20070516, end: 20071012
  2. ATRIPLA      (ALL OTHER THERAPEUTIC PRODUCTS) (TA) [Concomitant]
  3. AZITHROMYCIN [Concomitant]
  4. BACTRIM-DS           (BACTRIM /00086101/) (TA) [Concomitant]

REACTIONS (4)
  - ANOREXIA [None]
  - FATIGUE [None]
  - HEPATIC ENZYME INCREASED [None]
  - MALAISE [None]
